FAERS Safety Report 12193909 (Version 1)
Quarter: 2016Q1

REPORT INFORMATION
  Report Type: Spontaneous
  Country: US (occurrence: US)
  Receive Date: 20160321
  Receipt Date: 20160321
  Transmission Date: 20160526
  Serious: No
  Sender: FDA-Public Use
  Company Number: US-TEVA-558401USA

PATIENT
  Sex: Female

DRUGS (1)
  1. QUETIAPINE FUMARATE. [Suspect]
     Active Substance: QUETIAPINE FUMARATE
     Indication: SOMNOLENCE
     Dosage: 25 MILLIGRAM DAILY;
     Route: 048
     Dates: start: 20150409, end: 20150409

REACTIONS (7)
  - Fatigue [Unknown]
  - Constipation [Unknown]
  - Dry mouth [Unknown]
  - Nasal congestion [Unknown]
  - Product use issue [Unknown]
  - Dyspnoea [Unknown]
  - Sluggishness [Unknown]

NARRATIVE: CASE EVENT DATE: 20150409
